FAERS Safety Report 11381742 (Version 1)
Quarter: 2015Q3

REPORT INFORMATION
  Report Type: Spontaneous
  Country: US (occurrence: US)
  Receive Date: 20150814
  Receipt Date: 20150814
  Transmission Date: 20151125
  Serious: Yes (Other)
  Sender: FDA-Public Use
  Company Number: PHHY2015US094241

PATIENT
  Age: 51 Year
  Sex: Male

DRUGS (1)
  1. HEPARIN [Suspect]
     Active Substance: HEPARIN SODIUM
     Indication: DEEP VEIN THROMBOSIS
     Route: 042

REACTIONS (7)
  - Haemodynamic instability [Recovered/Resolved]
  - Jaundice [Recovering/Resolving]
  - Retroperitoneal haemorrhage [Recovered/Resolved]
  - Ecchymosis [Unknown]
  - Grey Turner^s sign [Unknown]
  - Retroperitoneal haematoma [Recovered/Resolved]
  - Peripheral swelling [Unknown]
